FAERS Safety Report 5870607-3 (Version None)
Quarter: 2008Q3

REPORT INFORMATION
  Report Type: 
  Country: None (occurrence: None)
  Receive Date: 20080904
  Receipt Date: 20080902
  Transmission Date: 20090109
  Serious: Yes (Other)
  Sender: FDA-Public Use
  Company Number: B0530824A

PATIENT
  Age: 48 Year
  Sex: Female

DRUGS (1)
  1. PAXIL [Suspect]
     Indication: DRUG USE FOR UNKNOWN INDICATION
     Route: 048
     Dates: start: 20080701

REACTIONS (3)
  - BLOOD PRESSURE INCREASED [None]
  - FEELING HOT [None]
  - VISUAL IMPAIRMENT [None]
